FAERS Safety Report 23712455 (Version 2)
Quarter: 2024Q2

REPORT INFORMATION
  Report Type: Spontaneous
  Country: JP (occurrence: JP)
  Receive Date: 20240405
  Receipt Date: 20240514
  Transmission Date: 20240716
  Serious: Yes (Hospitalization)
  Sender: FDA-Public Use
  Company Number: JP-sbiph-S000175210P

PATIENT
  Age: 76 Year
  Sex: Male
  Weight: 74.05 kg

DRUGS (1)
  1. AMINOLEVULINIC ACID HYDROCHLORIDE [Suspect]
     Active Substance: AMINOLEVULINIC ACID HYDROCHLORIDE
     Indication: Bladder transitional cell carcinoma
     Route: 048
     Dates: start: 20240301, end: 20240301

REACTIONS (2)
  - Anaphylactic shock [Recovered/Resolved]
  - Inappropriate schedule of product administration [Recovered/Resolved]

NARRATIVE: CASE EVENT DATE: 20240301
